FAERS Safety Report 7290641-9 (Version None)
Quarter: 2011Q1

REPORT INFORMATION
  Report Type: 
  Country: None (occurrence: None)
  Receive Date: 20110214
  Receipt Date: 20110208
  Transmission Date: 20110831
  Serious: Yes (Other)
  Sender: FDA-Public Use
  Company Number: US-GENZYME-CAMP-1001382

PATIENT
  Age: 29 Year
  Sex: Female

DRUGS (7)
  1. FLUDARA [Suspect]
     Indication: STEM CELL TRANSPLANT
     Dosage: 40 MG/M2, QDX5 FROM DAY -6 TO DAY -2
     Route: 042
  2. CYCLOSPORINE [Concomitant]
     Indication: PROPHYLAXIS
  3. MYCOPHENOLATE MOFETIL [Concomitant]
     Indication: PROPHYLAXIS
  4. CYCLOPHOSPHAMIDE [Suspect]
     Indication: STEM CELL TRANSPLANT
     Dosage: 50 MG/KG, ONCE ON DAY -6
     Route: 042
  5. MYCOPHENOLATE MOFETIL [Concomitant]
     Indication: PROPHYLAXIS AGAINST GRAFT VERSUS HOST DISEASE
     Dosage: 15 MG/KG, TID FROM DAY 0 TO DAY +30
     Route: 065
  6. CAMPATH [Suspect]
     Indication: STEM CELL TRANSPLANT
     Dosage: 0.2 MG/KG, QDX5 FROM DAY -10 TO DAY -6
     Route: 042
  7. CYCLOSPORINE [Concomitant]
     Indication: PROPHYLAXIS AGAINST GRAFT VERSUS HOST DISEASE
     Dosage: 2.5 MG/KG, STARTING ON DAY -3
     Route: 065

REACTIONS (2)
  - CYTOMEGALOVIRUS INFECTION [None]
  - CHRONIC GRAFT VERSUS HOST DISEASE [None]
